FAERS Safety Report 18941718 (Version 1)
Quarter: 2021Q1

REPORT INFORMATION
  Report Type: Spontaneous
  Country: US (occurrence: US)
  Receive Date: 20210225
  Receipt Date: 20210225
  Transmission Date: 20210420
  Serious: No
  Sender: FDA-Public Use
  Company Number: US-ELI_LILLY_AND_COMPANY-US202102000483

PATIENT
  Age: 65 Year
  Sex: Female

DRUGS (2)
  1. BAMLANIVIMAB. [Suspect]
     Active Substance: BAMLANIVIMAB
     Indication: COVID-19
     Dosage: UNK UNK, SINGLE
     Route: 042
     Dates: start: 20210124, end: 20210124
  2. DOXYCYCLINE. [Concomitant]
     Active Substance: DOXYCYCLINE
     Indication: COUGH
     Dosage: 100 MG, DAILY
     Dates: start: 20210128

REACTIONS (4)
  - Fear [Unknown]
  - Pruritus [Unknown]
  - Anxiety [Unknown]
  - Retching [Unknown]

NARRATIVE: CASE EVENT DATE: 20210128
